FAERS Safety Report 5494461-7 (Version None)
Quarter: 2007Q4

REPORT INFORMATION
  Report Type: 
  Country: None (occurrence: None)
  Receive Date: 20071022
  Receipt Date: 20071022
  Transmission Date: 20080405
  Serious: Yes (Life-Threatening, Hospitalization)
  Sender: FDA-Public Use
  Company Number: None

PATIENT
  Age: 65 Year
  Sex: Male

DRUGS (1)
  1. ERBITUX [Suspect]
     Indication: COLORECTAL CANCER
     Dosage: 850MG IV X 1 (LOADING)
     Route: 042
     Dates: start: 20070828, end: 20070828

REACTIONS (6)
  - ANAPHYLACTIC REACTION [None]
  - ANHIDROSIS [None]
  - DEPRESSED LEVEL OF CONSCIOUSNESS [None]
  - INFUSION RELATED REACTION [None]
  - MENTAL IMPAIRMENT [None]
  - PULSE ABNORMAL [None]
